FAERS Safety Report 8577286-5 (Version None)
Quarter: 2012Q2

REPORT INFORMATION
  Report Type: 
  Country: None (occurrence: None)
  Receive Date: 20120423
  Receipt Date: 20100729
  Transmission Date: 20120825
  Serious: Yes (Hospitalization)
  Sender: FDA-Public Use
  Company Number: PHEH2010US00717

PATIENT
  Age: 27 Year
  Sex: Female

DRUGS (1)
  1. EXJADE [Suspect]
     Indication: SICKLE CELL ANAEMIA
     Dosage: 2000 MG, QD, ORAL
     Route: 048

REACTIONS (6)
  - HAEMOGLOBIN DECREASED [None]
  - RENAL DISORDER [None]
  - BLOOD IRON INCREASED [None]
  - VOMITING [None]
  - SICKLE CELL ANAEMIA WITH CRISIS [None]
  - NAUSEA [None]
